FAERS Safety Report 6607117-1 (Version None)
Quarter: 2010Q1

REPORT INFORMATION
  Report Type: 
  Country: None (occurrence: None)
  Receive Date: 20100219
  Receipt Date: 20100206
  Transmission Date: 20100710
  Serious: Yes (Other)
  Sender: FDA-Public Use
  Company Number: 2010AP000238

PATIENT
  Age: 48 Year
  Sex: Male

DRUGS (9)
  1. CYCLOSPORINE [Suspect]
  2. PRAVASTATIN SODIUM [Suspect]
     Dosage: 10 MG;QD ; 20 MG
  3. MYCOPHENOLATE MOFETIL [Suspect]
     Dosage: 1 GM;BID
  4. FLUVASTATIN [Suspect]
  5. FENOFIBRATE [Suspect]
     Dosage: 54 MG;QD
  6. EZETIMIBE [Suspect]
     Dosage: 10 MG;QD
  7. SIROLIMUS [Suspect]
  8. LOPINAVIR AND RITONAVIR [Suspect]
  9. ATAZANAVIR [Suspect]

REACTIONS (7)
  - BLOOD CHOLESTEROL INCREASED [None]
  - BLOOD CREATINE PHOSPHOKINASE INCREASED [None]
  - BLOOD TRIGLYCERIDES INCREASED [None]
  - CHRONIC ALLOGRAFT NEPHROPATHY [None]
  - DRUG INTERACTION [None]
  - LOW DENSITY LIPOPROTEIN INCREASED [None]
  - NEPHROPATHY TOXIC [None]
